FAERS Safety Report 11651674 (Version 1)
Quarter: 2015Q4

REPORT INFORMATION
  Report Type: Spontaneous
  Country: US (occurrence: None)
  Receive Date: 20151021
  Receipt Date: 20151021
  Transmission Date: 20160304
  Serious: No
  Sender: FDA-Public Use
  Company Number: None

PATIENT
  Age: 21 Year
  Sex: Female
  Weight: 81.65 kg

DRUGS (6)
  1. VITAMIN D [Concomitant]
     Active Substance: CHOLECALCIFEROL
  2. VITAMIN B12 [Concomitant]
     Active Substance: CYANOCOBALAMIN
  3. BIOTIN [Concomitant]
     Active Substance: BIOTIN
  4. FISH OIL [Concomitant]
     Active Substance: FISH OIL
  5. BUPROPION. [Suspect]
     Active Substance: BUPROPION
     Indication: DEPRESSION
     Dosage: TAKEN BY MOUTH
     Route: 048
     Dates: start: 20140917, end: 20150219
  6. FLUOXETINE (PROZAC) [Concomitant]

REACTIONS (2)
  - Alopecia [None]
  - Acne cystic [None]

NARRATIVE: CASE EVENT DATE: 20150122
